FAERS Safety Report 23689585 (Version 1)
Quarter: 2024Q1

REPORT INFORMATION
  Report Type: Spontaneous
  Country: US (occurrence: US)
  Receive Date: 20240331
  Receipt Date: 20240331
  Transmission Date: 20240410
  Serious: No
  Sender: FDA-Public Use
  Company Number: US-TEVA-VS-3162183

PATIENT
  Sex: Male

DRUGS (1)
  1. TESTOSTERONE [Suspect]
     Active Substance: TESTOSTERONE
     Indication: Blood testosterone decreased
     Route: 065

REACTIONS (6)
  - Drug ineffective [Unknown]
  - Fatigue [Unknown]
  - Fatigue [Unknown]
  - Sexual dysfunction [Unknown]
  - Asthenia [Unknown]
  - Product dosage form issue [Unknown]
